FAERS Safety Report 7345816-7 (Version None)
Quarter: 2011Q1

REPORT INFORMATION
  Report Type: 
  Country: None (occurrence: None)
  Receive Date: 20110311
  Receipt Date: 20110302
  Transmission Date: 20110831
  Serious: Yes (Hospitalization)
  Sender: FDA-Public Use
  Company Number: DE-BIOGENIDEC-2011BI007778

PATIENT
  Age: 35 Year
  Sex: Female
  Weight: 64 kg

DRUGS (3)
  1. AVONEX [Suspect]
     Indication: MULTIPLE SCLEROSIS
     Route: 030
     Dates: start: 20091114
  2. DICLOFENAC [Concomitant]
     Indication: PROPHYLAXIS
     Route: 048
     Dates: start: 20091114
  3. IBUPROFEN [Concomitant]
     Indication: PROPHYLAXIS
     Route: 048
     Dates: start: 20091114

REACTIONS (4)
  - CONSTIPATION [None]
  - DYSMENORRHOEA [None]
  - METRORRHAGIA [None]
  - MENORRHAGIA [None]
